FAERS Safety Report 24832382 (Version 1)
Quarter: 2025Q1

REPORT INFORMATION
  Report Type: Spontaneous
  Country: CA (occurrence: CA)
  Receive Date: 20250110
  Receipt Date: 20250110
  Transmission Date: 20250408
  Serious: Yes (Other)
  Sender: ASTELLAS
  Company Number: CA-ASTELLAS-2025-AER-001383

PATIENT
  Age: 73 Year
  Sex: Female
  Weight: 40.82 kg

DRUGS (4)
  1. CRESEMBA [Suspect]
     Active Substance: ISAVUCONAZONIUM SULFATE
     Indication: Product used for unknown indication
     Dosage: 100 MG X2, Q8H FOR THE FIRST 6 DOSES THEN 100MGX2 (2 CAPSULES) ONCE A DAY.
     Route: 048
     Dates: start: 20241223
  2. CRESEMBA [Suspect]
     Active Substance: ISAVUCONAZONIUM SULFATE
     Route: 048
  3. VITAMIN B12 [Concomitant]
     Active Substance: CYANOCOBALAMIN
     Indication: Product used for unknown indication
     Route: 050
  4. REMICADE [Concomitant]
     Active Substance: INFLIXIMAB
     Indication: Product used for unknown indication
     Route: 050

REACTIONS (7)
  - Suicidal ideation [Unknown]
  - Dyspnoea [Unknown]
  - Diarrhoea [Unknown]
  - Depressed mood [Unknown]
  - Dizziness [Unknown]
  - Tachycardia [Unknown]
  - Nausea [Unknown]

NARRATIVE: CASE EVENT DATE: 20241224
